FAERS Safety Report 8847803 (Version 1)
Quarter: 2012Q4

REPORT INFORMATION
  Report Type: Report from Study
  Country: US (occurrence: US)
  Receive Date: 20121018
  Receipt Date: 20121018
  Transmission Date: 20130627
  Serious: Yes (Other)
  Sender: FDA-Public Use
  Company Number: US-ABBOTT-12P-163-0995557-00

PATIENT
  Sex: Female
  Weight: 127.12 kg

DRUGS (14)
  1. HUMIRA [Suspect]
     Indication: PSORIATIC ARTHROPATHY
     Dates: start: 2008
  2. ENBREL [Suspect]
     Indication: PSORIATIC ARTHROPATHY
     Dates: end: 2010
  3. VITAMIN D [Concomitant]
     Indication: VITAMIN SUPPLEMENTATION
  4. CYMBALTA [Concomitant]
     Indication: PAIN
  5. CLONAZEPAM [Concomitant]
     Indication: PAIN
  6. NITROFURANTIN [Concomitant]
     Indication: CYSTITIS
  7. NITROFURANTIN [Concomitant]
     Indication: PROPHYLAXIS
  8. BYSTOLIC [Concomitant]
     Indication: HYPERTENSION
  9. ACIPHEX [Concomitant]
     Indication: GASTRIC DISORDER
  10. ACIPHEX [Concomitant]
     Indication: PROPHYLAXIS
  11. MONTELUKAST [Concomitant]
     Indication: FACTOR V LEIDEN MUTATION
     Dosage: 10
  12. DIOVAN [Concomitant]
     Indication: HYPERTENSION
  13. LANTUS [Concomitant]
     Indication: DIABETES MELLITUS
  14. HUMALOG [Concomitant]
     Indication: DIABETES MELLITUS
     Dosage: Sliding scale

REACTIONS (13)
  - Dystonia [Not Recovered/Not Resolved]
  - Restless legs syndrome [Not Recovered/Not Resolved]
  - Paralysis [Not Recovered/Not Resolved]
  - Blindness transient [Recovered/Resolved]
  - VIIth nerve paralysis [Recovered/Resolved]
  - Brain injury [Not Recovered/Not Resolved]
  - Hepatic necrosis [Not Recovered/Not Resolved]
  - Multiple system atrophy [Not Recovered/Not Resolved]
  - Pulmonary embolism [Not Recovered/Not Resolved]
  - Autoimmune hepatitis [Not Recovered/Not Resolved]
  - Blood pressure fluctuation [Recovered/Resolved]
  - Amnesia [Not Recovered/Not Resolved]
  - Bladder sphincter atony [Not Recovered/Not Resolved]
